FAERS Safety Report 10310999 (Version 1)
Quarter: 2014Q3

REPORT INFORMATION
  Report Type: Report from Study
  Country: CA (occurrence: None)
  Receive Date: 20140715
  Receipt Date: 20140715
  Transmission Date: 20150326
  Serious: Yes (Other)
  Sender: FDA-Public Use
  Company Number: AXC-2014-000437

PATIENT
  Age: 38 Year
  Sex: Female
  Weight: 39 kg

DRUGS (7)
  1. GABAPENTIN (GABAPENTIN) [Concomitant]
     Active Substance: GABAPENTIN
  2. SALOFALK [Suspect]
     Active Substance: MESALAMINE
     Indication: PRODUCT USED FOR UNKNOWN INDICATION
  3. PANTOPRAZOLE (PANTOPRAZOLE) [Concomitant]
     Active Substance: PANTOPRAZOLE SODIUM
  4. CELEBREX [Concomitant]
     Active Substance: CELECOXIB
  5. INDOMETHACIN (INDOMETACIN) [Concomitant]
  6. PREDNISONE (PREDNISONE) [Concomitant]
     Active Substance: PREDNISONE
  7. ACTEMRA [Suspect]
     Active Substance: TOCILIZUMAB
     Indication: PRODUCT USED FOR UNKNOWN INDICATION
     Dosage: 1 EVERY 4 WEEKS
     Route: 042

REACTIONS (14)
  - Constipation [None]
  - Fatigue [None]
  - Abdominal distension [None]
  - Alopecia [None]
  - Drug effect decreased [None]
  - Crohn^s disease [None]
  - Gastrooesophageal reflux disease [None]
  - Nausea [None]
  - White blood cell count decreased [None]
  - Arthralgia [None]
  - Rectal haemorrhage [None]
  - Diarrhoea [None]
  - Abdominal pain [None]
  - Insomnia [None]
